FAERS Safety Report 8278017-9 (Version None)
Quarter: 2012Q2

REPORT INFORMATION
  Report Type: 
  Country: None (occurrence: None)
  Receive Date: 20120412
  Receipt Date: 20120403
  Transmission Date: 20120825
  Serious: Yes (Hospitalization)
  Sender: FDA-Public Use
  Company Number: IT-FRI-1000029398

PATIENT
  Sex: Female

DRUGS (2)
  1. ESCITALOPRAM [Suspect]
     Indication: INTENTIONAL SELF-INJURY
     Dosage: OVERDOSE: 300 MG
     Route: 048
     Dates: start: 20091213, end: 20091213
  2. ESCITALOPRAM [Suspect]
     Indication: DEPRESSION
     Route: 048
     Dates: start: 20091101, end: 20091213

REACTIONS (4)
  - BRADYPHRENIA [None]
  - BRADYKINESIA [None]
  - SOPOR [None]
  - INTENTIONAL OVERDOSE [None]
